FAERS Safety Report 6691543-9 (Version None)
Quarter: 2010Q2

REPORT INFORMATION
  Report Type: 
  Country: None (occurrence: None)
  Receive Date: 20100419
  Receipt Date: 20100414
  Transmission Date: 20101027
  Serious: Yes (Hospitalization, Other)
  Sender: FDA-Public Use
  Company Number: SPV1-2009-01613

PATIENT
  Age: 61 Year
  Sex: Male

DRUGS (3)
  1. FOSRENOL [Suspect]
     Indication: HYPERPHOSPHATAEMIA
     Dosage: 750 MG TOTAL DAILY DOSE, ORAL; 750 MG TOTAL DAILY DOSE, ORAL
     Route: 048
     Dates: start: 20090415, end: 20090101
  2. FOSRENOL [Suspect]
     Indication: HYPERPHOSPHATAEMIA
     Dosage: 750 MG TOTAL DAILY DOSE, ORAL; 750 MG TOTAL DAILY DOSE, ORAL
     Route: 048
     Dates: start: 20090101
  3. ASPIRIN [Concomitant]

REACTIONS (3)
  - FOREIGN BODY ASPIRATION [None]
  - WRONG TECHNIQUE IN DRUG USAGE PROCESS [None]
  - X-RAY ABNORMAL [None]
